FAERS Safety Report 4879471-2 (Version None)
Quarter: 2005Q4

REPORT INFORMATION
  Report Type: 
  Country: None (occurrence: None)
  Receive Date: 20051209
  Receipt Date: 20050930
  Transmission Date: 20060501
  Serious: Yes (Death)
  Sender: FDA-Public Use
  Company Number: USA-2005-0021383

PATIENT
  Age: 42 Year
  Sex: Male
  Weight: 106.1 kg

DRUGS (1)
  1. OXYCONTIN [Suspect]
     Route: 065

REACTIONS (1)
  - ACCIDENTAL OVERDOSE [None]
